FAERS Safety Report 13475667 (Version 1)
Quarter: 2017Q2

REPORT INFORMATION
  Report Type: Spontaneous
  Country: US (occurrence: US)
  Receive Date: 20170424
  Receipt Date: 20170424
  Transmission Date: 20170830
  Serious: Yes (Hospitalization)
  Sender: FDA-Public Use
  Company Number: None

PATIENT
  Age: 83 Year
  Sex: Male

DRUGS (15)
  1. ZETIA [Concomitant]
     Active Substance: EZETIMIBE
  2. ESBRIET [Suspect]
     Active Substance: PIRFENIDONE
     Indication: IDIOPATHIC PULMONARY FIBROSIS
     Route: 048
     Dates: start: 20150828
  3. PREDNISONE. [Concomitant]
     Active Substance: PREDNISONE
  4. ESBRIET [Concomitant]
     Active Substance: PIRFENIDONE
  5. FUROSEMOIDE [Concomitant]
  6. CALCIUM [Concomitant]
     Active Substance: CALCIUM
  7. POTASSIUM [Concomitant]
     Active Substance: POTASSIUM
  8. SIMVASTATIN. [Concomitant]
     Active Substance: SIMVASTATIN
  9. METOPROLOL TARTRATE. [Concomitant]
     Active Substance: METOPROLOL TARTRATE
  10. DORZOLAMIDE [Concomitant]
     Active Substance: DORZOLAMIDE
  11. COLACE [Concomitant]
     Active Substance: DOCUSATE SODIUM
  12. FISH OIL [Concomitant]
     Active Substance: FISH OIL
  13. COMBIGAN [Concomitant]
     Active Substance: BRIMONIDINE TARTRATE\TIMOLOL MALEATE
  14. ASPIRIN. [Concomitant]
     Active Substance: ASPIRIN
  15. LUMIGAN [Concomitant]
     Active Substance: BIMATOPROST

REACTIONS (1)
  - Bladder disorder [None]

NARRATIVE: CASE EVENT DATE: 20170421
